FAERS Safety Report 7670238 (Version 4)
Quarter: 2013Q1

REPORT INFORMATION
  Report Type: Spontaneous
  Country: DK (occurrence: SN)
  Receive Date: 20101116
  Receipt Date: 20130114
  Transmission Date: 20140127
  Serious: Yes (Other)
  Sender: FDA-Public Use
  Company Number: SN-NOVOPROD-318233

PATIENT
  Age: 62 Year
  Sex: Male
  Weight: 72 kg

DRUGS (15)
  1. VICTOZA [Suspect]
     Indication: TYPE 2 DIABETES MELLITUS
     Dosage: 1.6 MG, QD
     Route: 058
     Dates: start: 20100506, end: 20101108
  2. GLIMEPIRID [Concomitant]
     Indication: TYPE 2 DIABETES MELLITUS
     Dosage: 2 MG, BID
     Dates: start: 20090612, end: 20100422
  3. GLIMEPIRID [Concomitant]
     Dosage: 2 MG, BID
     Dates: start: 20100812
  4. METFORMIN [Concomitant]
     Indication: TYPE 2 DIABETES MELLITUS
     Dosage: 500 MG, BID
     Dates: start: 20070601, end: 200905
  5. METFORMIN [Concomitant]
     Dosage: 500 MG, BID
     Dates: start: 20090525
  6. METFORMIN [Concomitant]
     Dosage: 1000 MG, BID
     Dates: start: 200905, end: 20090529
  7. METFORMIN [Concomitant]
     Dosage: 500 MG, TID
     Dates: start: 20090612
  8. METFORMIN [Concomitant]
     Dosage: 500 MGX5
     Dates: start: 201011
  9. ROSIGLITAZONE [Concomitant]
     Dosage: 2 MG, UNK
     Dates: start: 200905, end: 200905
  10. GLUCOVANCE [Concomitant]
     Dosage: 5/500 MG
     Dates: start: 200905, end: 20090612
  11. DIAMICRON [Concomitant]
     Dosage: 30 MG, BID
     Dates: start: 20090612
  12. SIMVASTATIN [Concomitant]
     Dosage: 20 MG, QD
     Dates: end: 20091029
  13. ATORFIT [Concomitant]
     Dosage: 20 MG, QD
     Dates: start: 20091029, end: 20100422
  14. AVANDIA [Concomitant]
     Dosage: 4 MG, BID
     Dates: start: 20100422, end: 201008
  15. LANTUS                             /01483501/ [Concomitant]
     Dosage: UNK
     Dates: start: 201011

REACTIONS (7)
  - Alanine aminotransferase increased [Not Recovered/Not Resolved]
  - Aspartate aminotransferase increased [Not Recovered/Not Resolved]
  - Gamma-glutamyltransferase increased [Not Recovered/Not Resolved]
  - Fatigue [Recovered/Resolved]
  - Glycosylated haemoglobin increased [Unknown]
  - Liver disorder [None]
  - Discomfort [None]
